FAERS Safety Report 6827864-6 (Version None)
Quarter: 2010Q3

REPORT INFORMATION
  Report Type: 
  Country: None (occurrence: None)
  Receive Date: 20100709
  Receipt Date: 20100706
  Transmission Date: 20110219
  Serious: Yes (Hospitalization, Other)
  Sender: FDA-Public Use
  Company Number: A0796941A

PATIENT
  Age: 74 Year
  Sex: Male

DRUGS (11)
  1. PROMACTA [Suspect]
     Indication: IDIOPATHIC THROMBOCYTOPENIC PURPURA
     Dosage: 50MG UNKNOWN
     Route: 048
     Dates: start: 20090204
  2. ROMIPLOSTIM [Concomitant]
     Indication: IDIOPATHIC THROMBOCYTOPENIC PURPURA
     Dates: start: 20080925
  3. IMMUNE GLOBULIN INTRAVENOUS (HUMAN) [Concomitant]
  4. BLOOD TRANSFUSION [Concomitant]
  5. AMICAR [Concomitant]
     Dosage: 2G THREE TIMES PER DAY
     Route: 048
  6. ALTACE [Concomitant]
     Dosage: 10MG PER DAY
     Route: 048
  7. FOLIC ACID [Concomitant]
     Dosage: 1MG PER DAY
     Route: 048
  8. VITAMIN B-12 [Concomitant]
     Route: 048
  9. BENADRYL [Concomitant]
     Dosage: 25MG AS REQUIRED
     Route: 048
  10. MULTI-VITAMIN [Concomitant]
     Dosage: 1CAP PER DAY
     Route: 048
  11. ZOCOR [Concomitant]
     Dosage: 10MG PER DAY
     Route: 048

REACTIONS (9)
  - ANAEMIA [None]
  - ASTHENIA [None]
  - BONE MARROW RETICULIN FIBROSIS [None]
  - GASTROINTESTINAL HAEMORRHAGE [None]
  - HAEMOGLOBIN DECREASED [None]
  - MELAENA [None]
  - NUCLEATED RED CELLS [None]
  - PLATELET COUNT DECREASED [None]
  - RETICULOCYTOSIS [None]
